FAERS Safety Report 21173613 (Version 1)
Quarter: 2022Q3

REPORT INFORMATION
  Report Type: Spontaneous
  Country: MX (occurrence: MX)
  Receive Date: 20220804
  Receipt Date: 20220804
  Transmission Date: 20221026
  Serious: Yes (Hospitalization, Other)
  Sender: FDA-Public Use
  Company Number: MX-TAKEDA-2022TUS019325

PATIENT
  Sex: Female

DRUGS (2)
  1. ICLUSIG [Suspect]
     Active Substance: PONATINIB
     Indication: Chronic myeloid leukaemia
     Dosage: 45 MILLIGRAM, QD
     Route: 048
     Dates: start: 20220224, end: 20220512
  2. ICLUSIG [Suspect]
     Active Substance: PONATINIB
     Dosage: 15 MILLIGRAM, QD
     Route: 048
     Dates: start: 20220523

REACTIONS (19)
  - Dry skin [Unknown]
  - Skin exfoliation [Unknown]
  - Weight decreased [Unknown]
  - Dermatitis exfoliative generalised [Recovered/Resolved]
  - Pleural effusion [Recovered/Resolved]
  - Skin disorder [Unknown]
  - Hypotonia [Unknown]
  - Skin discolouration [Unknown]
  - Skin hypertrophy [Unknown]
  - Blood triglycerides increased [Unknown]
  - Blood cholesterol increased [Unknown]
  - Decreased appetite [Unknown]
  - Dry eye [Unknown]
  - Dry mouth [Unknown]
  - Asthenia [Recovering/Resolving]
  - Bone pain [Recovering/Resolving]
  - Headache [Recovering/Resolving]
  - Abdominal pain upper [Recovering/Resolving]
  - Painful respiration [Recovering/Resolving]

NARRATIVE: CASE EVENT DATE: 20220101
